FAERS Safety Report 17916023 (Version 1)
Quarter: 2020Q2

REPORT INFORMATION
  Report Type: Spontaneous
  Country: US (occurrence: US)
  Receive Date: 20200618
  Receipt Date: 20200618
  Transmission Date: 20200714
  Serious: No
  Sender: FDA-Public Use
  Company Number: None

PATIENT
  Age: 50 Year
  Sex: Female
  Weight: 112.5 kg

DRUGS (7)
  1. REMICADE [Suspect]
     Active Substance: INFLIXIMAB
     Indication: SARCOIDOSIS
     Dates: start: 20191216
  2. REMICADE [Suspect]
     Active Substance: INFLIXIMAB
     Indication: RHEUMATOID ARTHRITIS
     Dates: start: 20191216
  3. PREDNISONE. [Concomitant]
     Active Substance: PREDNISONE
  4. INSULIN [Concomitant]
     Active Substance: INSULIN NOS
  5. VITAMIN D [Concomitant]
     Active Substance: VITAMIN D NOS
  6. ELDERBERRY WITH VIT C ZU=INC [Concomitant]
  7. CLARITIN [Concomitant]
     Active Substance: LORATADINE

REACTIONS (1)
  - Cyst [None]
